FAERS Safety Report 25910887 (Version 1)
Quarter: 2025Q4

REPORT INFORMATION
  Report Type: Spontaneous
  Country: EU (occurrence: EU)
  Receive Date: 20251013
  Receipt Date: 20251013
  Transmission Date: 20260118
  Serious: Yes (Death, Other)
  Sender: BRISTOL-MYERS SQUIBB COMPANY
  Company Number: EU-BRISTOL-MYERS SQUIBB COMPANY-2025-139131

PATIENT
  Age: 78 Year
  Sex: Male

DRUGS (9)
  1. AZACITIDINE [Suspect]
     Active Substance: AZACITIDINE
     Indication: Acute myeloid leukaemia
     Dosage: FIRST ADMIN DATE:2024, DOSE REDUCED
  2. AZACITIDINE [Suspect]
     Active Substance: AZACITIDINE
     Dosage: D1-5
     Dates: start: 202309, end: 2024
  3. VENETOCLAX [Suspect]
     Active Substance: VENETOCLAX
     Indication: Acute myeloid leukaemia
     Dosage: D1-21 CYCLE
  4. VENETOCLAX [Suspect]
     Active Substance: VENETOCLAX
     Dosage: CYCLE 1
  5. GLASDEGIB [Suspect]
     Active Substance: GLASDEGIB
     Indication: Acute myeloid leukaemia
     Dosage: LAST ADMIN DATE:2024
  6. GLASDEGIB [Suspect]
     Active Substance: GLASDEGIB
     Dosage: EXTENSION OF CYCLE LENGTH TO SUCCESSIVELY 42 DAYS, AND DOSE REDUCTION TO 50MG GLASDEGIB
     Dates: start: 202408, end: 202410
  7. GLASDEGIB [Suspect]
     Active Substance: GLASDEGIB
     Dosage: A TOTAL OF 10 CYCLES
     Dates: start: 202411, end: 202503
  8. DECITABINE [Suspect]
     Active Substance: DECITABINE
     Indication: Acute myeloid leukaemia
  9. CYTARABINE [Concomitant]
     Active Substance: CYTARABINE
     Indication: Acute myeloid leukaemia

REACTIONS (1)
  - Death [Fatal]

NARRATIVE: CASE EVENT DATE: 20250601
